FAERS Safety Report 25805895 (Version 2)
Quarter: 2025Q4

REPORT INFORMATION
  Report Type: Spontaneous
  Country: US (occurrence: US)
  Receive Date: 20250916
  Receipt Date: 20251013
  Transmission Date: 20260118
  Serious: No
  Sender: HETERO
  Company Number: US-HETERO-HET2025US05279

PATIENT
  Sex: Male

DRUGS (1)
  1. VARENICLINE [Suspect]
     Active Substance: VARENICLINE
     Indication: Ex-tobacco user
     Dosage: UNK
     Route: 065

REACTIONS (1)
  - Drug ineffective [Unknown]
